FAERS Safety Report 18698728 (Version 3)
Quarter: 2021Q3

REPORT INFORMATION
  Report Type: Report from Study
  Country: US (occurrence: US)
  Receive Date: 20210104
  Receipt Date: 20210805
  Transmission Date: 20211014
  Serious: Yes (Other)
  Sender: FDA-Public Use
  Company Number: NVSC2020US347326

PATIENT
  Sex: Female

DRUGS (1)
  1. XIIDRA [Suspect]
     Active Substance: LIFITEGRAST
     Indication: DRY EYE
     Dosage: 1 DRP, BID (1 GTT PER EYE)
     Route: 047
     Dates: start: 202011

REACTIONS (3)
  - Rheumatoid arthritis [Unknown]
  - Decreased immune responsiveness [Unknown]
  - Attention deficit hyperactivity disorder [Unknown]
